FAERS Safety Report 17586012 (Version 1)
Quarter: 2020Q1

REPORT INFORMATION
  Report Type: Spontaneous
  Country: US (occurrence: US)
  Receive Date: 20200326
  Receipt Date: 20200326
  Transmission Date: 20200409
  Serious: Yes (Other)
  Sender: FDA-Public Use
  Company Number: None

PATIENT
  Age: 28 Year
  Sex: Female
  Weight: 67.13 kg

DRUGS (3)
  1. MUCINEX D [Suspect]
     Active Substance: GUAIFENESIN\PSEUDOEPHEDRINE HYDROCHLORIDE
     Indication: CHRONIC SINUSITIS
     Dosage: QUANTITY: 2 TABLETS
     Route: 048
     Dates: start: 20200324, end: 20200325
  2. THERAPY OF SODIUM CHLORIDE [Concomitant]
  3. FLUTICASONE. [Concomitant]
     Active Substance: FLUTICASONE

REACTIONS (1)
  - Asthma [None]

NARRATIVE: CASE EVENT DATE: 20200325
